FAERS Safety Report 10853200 (Version 1)
Quarter: 2015Q1

REPORT INFORMATION
  Report Type: Spontaneous
  Country: US (occurrence: US)
  Receive Date: 20150223
  Receipt Date: 20150223
  Transmission Date: 20150721
  Serious: Yes (Other)
  Sender: FDA-Public Use
  Company Number: US-AMGEN-USASP2015015880

PATIENT
  Age: 47 Year
  Sex: Female

DRUGS (4)
  1. ENBREL [Suspect]
     Active Substance: ETANERCEPT
     Indication: PSORIASIS
     Dosage: 50 MG, QWK
     Route: 065
     Dates: start: 200510
  2. TACLONEX [Concomitant]
     Active Substance: BETAMETHASONE DIPROPIONATE\CALCIPOTRIENE\CALCIPOTRIENE HYDRATE
     Dosage: UNK
     Route: 061
  3. FISH OIL [Concomitant]
     Active Substance: FISH OIL
     Dosage: UNK
  4. CALTRATE D                         /00944201/ [Concomitant]
     Dosage: UNK

REACTIONS (3)
  - Retinal detachment [Unknown]
  - Hypergammaglobulinaemia benign monoclonal [Unknown]
  - Anal fistula [Unknown]

NARRATIVE: CASE EVENT DATE: 2015
